FAERS Safety Report 4453663-9 (Version None)
Quarter: 2004Q3

REPORT INFORMATION
  Report Type: 
  Country: None (occurrence: None)
  Receive Date: 20040920
  Receipt Date: 20040909
  Transmission Date: 20050211
  Serious: Yes (Hospitalization)
  Sender: FDA-Public Use
  Company Number: SEWYE026409SEP04

PATIENT
  Sex: Female

DRUGS (9)
  1. ENBREL [Suspect]
     Indication: RHEUMATOID ARTHRITIS
     Dates: start: 20040101, end: 20040313
  2. METHOTREXATE [Concomitant]
  3. FOLACIN [Concomitant]
  4. ALVEDON [Concomitant]
  5. ISONIAZID [Concomitant]
  6. DOLOXENE [Concomitant]
  7. AMILORIDE HYDROCHLORIDE [Concomitant]
  8. CALCICHEW [Concomitant]
  9. RISEDRONATE SODIUM [Concomitant]

REACTIONS (2)
  - HYPERCALCAEMIA [None]
  - RENAL TUBULAR NECROSIS [None]
